FAERS Safety Report 7020497-0 (Version None)
Quarter: 2010Q3

REPORT INFORMATION
  Report Type: 
  Country: None (occurrence: None)
  Receive Date: 20100929
  Receipt Date: 20100921
  Transmission Date: 20110219
  Serious: Yes (Other)
  Sender: FDA-Public Use
  Company Number: BR-ROCHE-727959

PATIENT
  Sex: Female
  Weight: 68 kg

DRUGS (1)
  1. XELODA [Suspect]
     Dosage: THIRD CYCLE
     Route: 048
     Dates: start: 20070101

REACTIONS (5)
  - BURSITIS [None]
  - CHROMATURIA [None]
  - MALIGNANT NEOPLASM PROGRESSION [None]
  - MUSCULOSKELETAL PAIN [None]
  - URINE ODOUR ABNORMAL [None]
